FAERS Safety Report 4957464-4 (Version None)
Quarter: 2006Q1

REPORT INFORMATION
  Report Type: 
  Country: None (occurrence: None)
  Receive Date: 20060328
  Receipt Date: 20060328
  Transmission Date: 20060701
  Serious: Yes (Hospitalization)
  Sender: FDA-Public Use
  Company Number: None

PATIENT
  Age: 81 Year
  Sex: Female
  Weight: 69.8539 kg

DRUGS (7)
  1. TAXOTERE [Suspect]
     Indication: BREAST CANCER METASTATIC
     Dosage: 75 MG/M2 Q 3 WK IV
     Route: 042
     Dates: start: 20050421, end: 20060220
  2. BEVACIZUMAB [Suspect]
     Indication: BREAST CANCER METASTATIC
     Dosage: 15 MG.KG Q 3 WK IV
     Route: 042
     Dates: start: 20050826, end: 20060220
  3. DIOVAN [Concomitant]
  4. ZOLOFT [Concomitant]
  5. ASPIRIN [Concomitant]
  6. MEGACE [Concomitant]
  7. TRIAMTERENE [Concomitant]

REACTIONS (1)
  - PULMONARY EMBOLISM [None]
